FAERS Safety Report 6263559-8 (Version None)
Quarter: 2009Q3

REPORT INFORMATION
  Report Type: 
  Country: None (occurrence: None)
  Receive Date: 20090710
  Receipt Date: 20090416
  Transmission Date: 20100115
  Serious: No
  Sender: FDA-Public Use
  Company Number: A0780351A

PATIENT
  Sex: Female

DRUGS (1)
  1. TYKERB [Suspect]
     Route: 048

REACTIONS (3)
  - NAIL DISORDER [None]
  - SKIN LACERATION [None]
  - SKIN ULCER [None]
